FAERS Safety Report 24286396 (Version 12)
Quarter: 2025Q1

REPORT INFORMATION
  Report Type: Report from Study
  Country: US (occurrence: US)
  Receive Date: 20240905
  Receipt Date: 20250210
  Transmission Date: 20250409
  Serious: Yes (Other)
  Sender: NOVARTIS
  Company Number: US-002147023-NVSC2024US177469

PATIENT
  Sex: Female
  Weight: 73.94 kg

DRUGS (4)
  1. COSENTYX [Suspect]
     Active Substance: SECUKINUMAB
     Indication: Psoriasis
     Dosage: 150 MG, QMO (1X150MG)
     Route: 058
  2. COSENTYX [Suspect]
     Active Substance: SECUKINUMAB
     Indication: Psoriatic arthropathy
     Route: 065
     Dates: start: 202312, end: 202409
  3. COSENTYX [Suspect]
     Active Substance: SECUKINUMAB
     Route: 065
     Dates: start: 20240923
  4. COSENTYX [Suspect]
     Active Substance: SECUKINUMAB
     Route: 050

REACTIONS (16)
  - Hemihypoaesthesia [Unknown]
  - Decreased immune responsiveness [Unknown]
  - Cardiovascular disorder [Unknown]
  - Paraesthesia [Unknown]
  - Joint swelling [Unknown]
  - Cough [Unknown]
  - Psoriatic arthropathy [Unknown]
  - Arthralgia [Unknown]
  - Musculoskeletal stiffness [Recovered/Resolved]
  - Balance disorder [Unknown]
  - Pain [Unknown]
  - Skin exfoliation [Recovered/Resolved]
  - Rebound psoriasis [Unknown]
  - Joint stiffness [Unknown]
  - Gait disturbance [Unknown]
  - Skin disorder [Unknown]

NARRATIVE: CASE EVENT DATE: 20230101
